FAERS Safety Report 6094967-6 (Version None)
Quarter: 2009Q1

REPORT INFORMATION
  Report Type: 
  Country: None (occurrence: None)
  Receive Date: 20090227
  Receipt Date: 20090216
  Transmission Date: 20090719
  Serious: Yes (Other)
  Sender: FDA-Public Use
  Company Number: FR-PFIZER INC-2009172502

PATIENT

DRUGS (10)
  1. ZYVOXID [Suspect]
     Indication: SEPTIC SHOCK
     Dosage: 600 MG, 2X/DAY
     Route: 048
     Dates: start: 20081029, end: 20081113
  2. AMIODARONE [Suspect]
     Indication: ATRIAL FLUTTER
     Route: 042
     Dates: start: 20081103, end: 20081111
  3. CASPOFUNGIN [Suspect]
     Dosage: 70 MG, 1X/DAY
     Route: 042
     Dates: start: 20081109, end: 20081121
  4. NOREPINEPHRINE BITARTRATE [Concomitant]
     Dates: end: 20081104
  5. DROTRECOGIN ALFA [Concomitant]
  6. CLAMOXYL [Concomitant]
     Route: 042
  7. FLUCONAZOLE [Concomitant]
     Indication: VULVOVAGINAL CANDIDIASIS
     Route: 042
     Dates: start: 20081103, end: 20081109
  8. CEFTAZIDIME PENTAHYDRATE [Concomitant]
  9. LEVOTHYROXINE [Concomitant]
     Dates: start: 20081104
  10. INSULIN [Concomitant]
     Dates: start: 20081102

REACTIONS (3)
  - CARDIAC FLUTTER [None]
  - CHOLESTASIS [None]
  - HYPOTHYROIDISM [None]
